FAERS Safety Report 7889145-1 (Version None)
Quarter: 2011Q4

REPORT INFORMATION
  Report Type: 
  Country: None (occurrence: None)
  Receive Date: 20111103
  Receipt Date: 20111028
  Transmission Date: 20120403
  Serious: Yes (Other)
  Sender: FDA-Public Use
  Company Number: JP-PFIZER INC-2011235858

PATIENT
  Age: 61 Year
  Sex: Male

DRUGS (7)
  1. VARENICLINE TARTRATE [Suspect]
     Dosage: 1 MG, 2X/DAY
     Route: 048
     Dates: start: 20110809, end: 20111004
  2. VARENICLINE TARTRATE [Suspect]
     Indication: SMOKING CESSATION THERAPY
     Dosage: 0.5 MG, 2X/DAY
     Route: 048
     Dates: start: 20110805, end: 20110808
  3. CLARITHROMYCIN [Concomitant]
     Indication: ASTHMA
     Dosage: UNK
     Dates: end: 20110818
  4. CLARITHROMYCIN [Concomitant]
     Indication: DYSPNOEA
  5. ADOAIR [Concomitant]
     Indication: ASTHMA
     Dosage: UNK
     Dates: end: 20110818
  6. VARENICLINE TARTRATE [Suspect]
     Indication: NICOTINE DEPENDENCE
     Dosage: 0.5 MG, 1X/DAY
     Route: 048
     Dates: start: 20110802, end: 20110804
  7. ADOAIR [Concomitant]
     Indication: DYSPNOEA

REACTIONS (2)
  - HEPATITIS ACUTE [None]
  - HEPATIC FUNCTION ABNORMAL [None]
